FAERS Safety Report 6312373-3 (Version None)
Quarter: 2009Q3

REPORT INFORMATION
  Report Type: 
  Country: None (occurrence: None)
  Receive Date: 20090817
  Receipt Date: 20090807
  Transmission Date: 20100115
  Serious: Yes (Hospitalization, Other)
  Sender: FDA-Public Use
  Company Number: CA-ABBOTT-09P-028-0590070-00

PATIENT
  Sex: Male
  Weight: 58.566 kg

DRUGS (1)
  1. HUMIRA [Suspect]
     Indication: CROHN'S DISEASE
     Route: 058
     Dates: start: 20090410, end: 20090601

REACTIONS (6)
  - ANAL SKIN TAGS [None]
  - GASTROINTESTINAL DISORDER [None]
  - PYREXIA [None]
  - RECTAL LESION [None]
  - STAPHYLOCOCCAL INFECTION [None]
  - WEIGHT DECREASED [None]
